FAERS Safety Report 24367231 (Version 1)
Quarter: 2024Q3

REPORT INFORMATION
  Report Type: Spontaneous
  Country: CA (occurrence: CA)
  Receive Date: 20240926
  Receipt Date: 20240926
  Transmission Date: 20241017
  Serious: Yes (Other)
  Sender: BAXTER
  Company Number: CA-BAXTER-2024BAX024861

PATIENT
  Age: 9 Year
  Sex: Male

DRUGS (19)
  1. CYCLOPHOSPHAMIDE [Suspect]
     Active Substance: CYCLOPHOSPHAMIDE
     Indication: Acute myeloid leukaemia
     Dosage: UNK, DOSAGE FORM: NOT SPECIFIED
     Route: 065
  2. CYCLOPHOSPHAMIDE [Suspect]
     Active Substance: CYCLOPHOSPHAMIDE
     Dosage: UNK, DOSAGE FORM: NOT SPECIFIED
     Route: 065
  3. BUSULFAN [Suspect]
     Active Substance: BUSULFAN
     Indication: Acute myeloid leukaemia
     Dosage: UNK, DOSAGE FORM: NOT SPECIFIED
     Route: 065
  4. BUSULFEX [Suspect]
     Active Substance: BUSULFAN
     Indication: Acute myeloid leukaemia
     Dosage: UNK, DOSAGE FORM: SOLUTION INTRAVENOUS
     Route: 065
  5. CYTARABINE [Suspect]
     Active Substance: CYTARABINE
     Indication: Acute myeloid leukaemia
     Dosage: 1000.0 MG/M2, 1 EVERY 1 DAYS, DOSAGE FORM: NOT SPECIFIED, INJECTION
     Route: 037
  6. CYTARABINE [Suspect]
     Active Substance: CYTARABINE
     Dosage: 100.0 MG/M2, 1 EVERY 1 DAYS, DOSAGE FORM: NOT SPECIFIED, INJECTION
     Route: 037
  7. CYTARABINE [Suspect]
     Active Substance: CYTARABINE
     Dosage: 2000.0 MG/M2, 1 EVERY 1 DAYS, DOSAGE FORM: NOT SPECIFIED, INJECTION
     Route: 037
  8. DAUNORUBICIN [Suspect]
     Active Substance: DAUNORUBICIN
     Indication: Acute myeloid leukaemia
     Dosage: UNK
     Route: 065
  9. DAUNORUBICIN [Suspect]
     Active Substance: DAUNORUBICIN
     Dosage: UNK
     Route: 065
  10. DAUNORUBICIN HYDROCHLORIDE [Suspect]
     Active Substance: DAUNORUBICIN HYDROCHLORIDE
     Indication: Acute myeloid leukaemia
     Dosage: 50.0 MG/M2, DOSAGE FORM: POWDER FOR SOLUTION INTRAVENOUS, INJECTION
     Route: 042
  11. ETOPOSIDE [Suspect]
     Active Substance: ETOPOSIDE
     Indication: Acute myeloid leukaemia
     Dosage: 100.0 MG/M2, DOSAGE FORM: NOT SPECIFIED
     Route: 065
  12. FILGRASTIM [Suspect]
     Active Substance: FILGRASTIM
     Indication: Acute myeloid leukaemia
     Dosage: UNK
     Route: 065
  13. FLUDARABINE [Suspect]
     Active Substance: FLUDARABINE PHOSPHATE
     Indication: Acute myeloid leukaemia
     Dosage: 30.0 MG/M2, 1 EVERY 1, DOSAGE FORM: NOT SPECIFIED
     Route: 065
  14. FLUDARABINE [Suspect]
     Active Substance: FLUDARABINE PHOSPHATE
     Dosage: 30.0 MG/M2, 1 EVERY 1, DOSAGE FORM: NOT SPECIFIED
     Route: 065
  15. NEXAVAR [Suspect]
     Active Substance: SORAFENIB
     Indication: Acute myeloid leukaemia
     Dosage: UNK
     Route: 065
  16. NEXAVAR [Suspect]
     Active Substance: SORAFENIB
     Dosage: 200.0 MG/M2, 1 EVERY 1 DAYS
     Route: 065
  17. RYDAPT [Suspect]
     Active Substance: MIDOSTAURIN
     Indication: Acute myeloid leukaemia
     Dosage: 30.0 MG/M2, 2 EVERY 1 DAYS
     Route: 048
  18. RYDAPT [Suspect]
     Active Substance: MIDOSTAURIN
     Dosage: 15.0 MG/M2, 2 EVERY 1 DAYS
     Route: 048
  19. THYMOGLOBULIN [Suspect]
     Active Substance: LAPINE T-LYMPHOCYTE IMMUNE GLOBULIN
     Indication: Acute myeloid leukaemia
     Dosage: UNK, DOSAGE FORM: POWDER FOR SOLUTION INTRAVENOUS
     Route: 042

REACTIONS (7)
  - Drug intolerance [Recovered/Resolved with Sequelae]
  - Lymphadenopathy [Recovered/Resolved with Sequelae]
  - Skin toxicity [Recovered/Resolved with Sequelae]
  - Acute myeloid leukaemia recurrent [Recovered/Resolved with Sequelae]
  - Bone marrow failure [Recovered/Resolved with Sequelae]
  - Myelosuppression [Recovered/Resolved with Sequelae]
  - Pancytopenia [Recovered/Resolved with Sequelae]
